FAERS Safety Report 16944441 (Version 1)
Quarter: 2019Q4

REPORT INFORMATION
  Report Type: Spontaneous
  Country: GB (occurrence: GB)
  Receive Date: 20191022
  Receipt Date: 20191022
  Transmission Date: 20200122
  Serious: Yes (Hospitalization)
  Sender: FDA-Public Use
  Company Number: GB-TEVA-2019-GB-1123690

PATIENT
  Sex: Male

DRUGS (20)
  1. SALBUTAMOL [Concomitant]
     Active Substance: ALBUTEROL
     Dosage: 2 PUFFS FOUR TIMES?A DAY OR WHEN REQUIRED - PATIENT^S OWN DRUGS
     Route: 055
  2. EKLIRA GENUAIR [Concomitant]
     Active Substance: ACLIDINIUM BROMIDE
     Dosage: 644 MICROGRAM
     Route: 055
  3. RAMIPRIL. [Concomitant]
     Active Substance: RAMIPRIL
     Dosage: 1.25MG PER DAY
  4. RANOLAZINE. [Concomitant]
     Active Substance: RANOLAZINE
     Dosage: 1500 MG PER DAY
  5. SODIUM CHLORIDE. [Concomitant]
     Active Substance: SODIUM CHLORIDE
     Dosage: ONE TO BE USED IN THE NEBULISER WHEN REQUIRED, 2.5 ML
  6. METFORMIN [Concomitant]
     Active Substance: METFORMIN HYDROCHLORIDE
     Dosage: 500 MG PER DAY
  7. METOCLOPRAMIDE. [Suspect]
     Active Substance: METOCLOPRAMIDE
     Dosage: 30 MG PER DAY
     Route: 065
  8. LANSOPRAZOLE. [Concomitant]
     Active Substance: LANSOPRAZOLE
     Dosage: 15 MG PER DAY
  9. GLYCERYL TRINITRATE [Concomitant]
     Active Substance: NITROGLYCERIN
     Dosage: 500 MICROGRAM
     Route: 060
  10. ATORVASTATIN [Concomitant]
     Active Substance: ATORVASTATIN
     Dosage: 40 MG PER DAY
  11. BUMETANIDE. [Concomitant]
     Active Substance: BUMETANIDE
     Dosage: EACH MORNING 2 MG PER DAY
  12. CHEMYDUR XL [Concomitant]
     Active Substance: ISOSORBIDE MONONITRATE
     Dosage: EACH MORNING 90 MG PER DAY
  13. PREDNISOLONE. [Concomitant]
     Active Substance: PREDNISOLONE
     Dosage: 10 MG PER DAY
  14. NICORANDIL [Concomitant]
     Active Substance: NICORANDIL
     Dosage: 20 MG PER DAY
  15. BISOPROLOL [Concomitant]
     Active Substance: BISOPROLOL
     Dosage: 5 MG PER DAY
  16. AZITHROMYCIN ANHYDROUS. [Concomitant]
     Active Substance: AZITHROMYCIN ANHYDROUS
     Dosage: MONDAY WEDNESDAY FRIDAY, 750 MG PER WEEKS
  17. DIGOXIN. [Concomitant]
     Active Substance: DIGOXIN
     Dosage: 125 MICROGRAM
  18. FOSTAIR [Concomitant]
     Active Substance: BECLOMETHASONE\FORMOTEROL
     Dosage: 100MICROGRAMS/DOSE / 6MICROGRAMS/DOSE, 4 DOSAGE FORMS
     Route: 055
  19. APIXABAN [Concomitant]
     Active Substance: APIXABAN
     Dosage: 10 MG PER DAY
  20. MORPHINE [Concomitant]
     Active Substance: MORPHINE
     Dosage: 1.25MLS TO BE TAKEN UP TO 4 TIMES DAILY AS?REQUIRED

REACTIONS (4)
  - Parkinsonism [Recovered/Resolved]
  - Malaise [Recovered/Resolved]
  - Extrapyramidal disorder [Recovered/Resolved]
  - Lethargy [Recovered/Resolved]
